FAERS Safety Report 15335652 (Version 1)
Quarter: 2018Q3

REPORT INFORMATION
  Report Type: Report from Study
  Country: GB (occurrence: GB)
  Receive Date: 20180830
  Receipt Date: 20180830
  Transmission Date: 20181010
  Serious: Yes (Other)
  Sender: FDA-Public Use
  Company Number: GB-BAYER-2018-160200

PATIENT
  Age: 51 Year
  Sex: Female

DRUGS (4)
  1. LNG?IUS [Suspect]
     Active Substance: LEVONORGESTREL
     Indication: MENORRHAGIA
     Dosage: UNK
  2. LNG?IUS [Suspect]
     Active Substance: LEVONORGESTREL
     Indication: PREMENSTRUAL SYNDROME
  3. LNG?IUS [Suspect]
     Active Substance: LEVONORGESTREL
     Indication: ANAEMIA
  4. ULIPRISTAL ACETATE [Concomitant]
     Active Substance: ULIPRISTAL ACETATE
     Dosage: UNK
     Dates: start: 20120803

REACTIONS (1)
  - Stress urinary incontinence [None]
